FAERS Safety Report 4848579-X (Version None)
Quarter: 2005Q4

REPORT INFORMATION
  Report Type: 
  Country: None (occurrence: None)
  Receive Date: 20051115
  Receipt Date: 20050809
  Transmission Date: 20060501
  Serious: Yes (Other)
  Sender: FDA-Public Use
  Company Number: 405144

PATIENT
  Age: 50 Year
  Sex: Male
  Weight: 67.6 kg

DRUGS (5)
  1. PEGASYS [Suspect]
     Indication: HEPATITIS C
     Dosage: 180 MCG 1 PER WEEK SUBCUTANEOUS
     Route: 058
     Dates: start: 20050202
  2. COPEGUS [Suspect]
     Indication: HEPATITIS C
     Dosage: 3 DOSE FORM 2 PER DAY ORAL
     Route: 048
     Dates: start: 20050202, end: 20050517
  3. GLUCOPHAGE [Concomitant]
  4. INSULIN [Concomitant]
  5. AMARYL [Concomitant]

REACTIONS (10)
  - ANOREXIA [None]
  - ARTHRALGIA [None]
  - BLOOD GLUCOSE INCREASED [None]
  - FATIGUE [None]
  - MYALGIA [None]
  - NAUSEA [None]
  - PARAESTHESIA [None]
  - PRURITUS [None]
  - WEIGHT DECREASED [None]
  - WHITE BLOOD CELL COUNT DECREASED [None]
